FAERS Safety Report 6003351-2 (Version None)
Quarter: 2008Q4

REPORT INFORMATION
  Report Type: 
  Country: None (occurrence: None)
  Receive Date: 20081212
  Receipt Date: 20081204
  Transmission Date: 20090506
  Serious: Yes (Other)
  Sender: FDA-Public Use
  Company Number: 2005JP000919

PATIENT
  Age: 12 Year
  Sex: Female
  Weight: 26.7 kg

DRUGS (31)
  1. TACROLIMUS [Suspect]
     Indication: RENAL TRANSPLANT
     Dosage: 4.00 MG, BID, ORAL : 4 MG, UID/QD, ORAL : 2 MG, ORAL : 1.5 MG, BID, ORAL : 2 MG, BID, ORAL
     Route: 048
     Dates: start: 20020624, end: 20020625
  2. TACROLIMUS [Suspect]
     Indication: RENAL TRANSPLANT
     Dosage: 4.00 MG, BID, ORAL : 4 MG, UID/QD, ORAL : 2 MG, ORAL : 1.5 MG, BID, ORAL : 2 MG, BID, ORAL
     Route: 048
     Dates: start: 20020806, end: 20020819
  3. TACROLIMUS [Suspect]
     Indication: RENAL TRANSPLANT
     Dosage: 4.00 MG, BID, ORAL : 4 MG, UID/QD, ORAL : 2 MG, ORAL : 1.5 MG, BID, ORAL : 2 MG, BID, ORAL
     Route: 048
     Dates: start: 20020820, end: 20020821
  4. TACROLIMUS [Suspect]
     Indication: RENAL TRANSPLANT
     Dosage: 4.00 MG, BID, ORAL : 4 MG, UID/QD, ORAL : 2 MG, ORAL : 1.5 MG, BID, ORAL : 2 MG, BID, ORAL
     Route: 048
     Dates: start: 20020822, end: 20020919
  5. TACROLIMUS [Suspect]
     Indication: RENAL TRANSPLANT
     Dosage: 4.00 MG, BID, ORAL : 4 MG, UID/QD, ORAL : 2 MG, ORAL : 1.5 MG, BID, ORAL : 2 MG, BID, ORAL
     Route: 048
     Dates: start: 20020920, end: 20021112
  6. PROGRAF [Suspect]
     Indication: RENAL TRANSPLANT
     Dosage: SEE IMAGE
     Route: 041
     Dates: start: 20020626, end: 20020627
  7. PROGRAF [Suspect]
     Indication: RENAL TRANSPLANT
     Dosage: SEE IMAGE
     Route: 041
     Dates: start: 20020628, end: 20020628
  8. PROGRAF [Suspect]
     Indication: RENAL TRANSPLANT
     Dosage: SEE IMAGE
     Route: 041
     Dates: start: 20020629, end: 20020629
  9. PROGRAF [Suspect]
     Indication: RENAL TRANSPLANT
     Dosage: SEE IMAGE
     Route: 041
     Dates: start: 20020629, end: 20020710
  10. PROGRAF [Suspect]
     Indication: RENAL TRANSPLANT
     Dosage: SEE IMAGE
     Route: 041
     Dates: start: 20020711, end: 20020724
  11. PROGRAF [Suspect]
     Indication: RENAL TRANSPLANT
     Dosage: SEE IMAGE
     Route: 041
     Dates: start: 20020725, end: 20020801
  12. PROGRAF [Suspect]
     Indication: RENAL TRANSPLANT
     Dosage: SEE IMAGE
     Route: 041
     Dates: start: 20020802, end: 20020802
  13. PROGRAF [Suspect]
     Indication: RENAL TRANSPLANT
     Dosage: SEE IMAGE
     Route: 041
     Dates: start: 20020803, end: 20020804
  14. PROGRAF [Suspect]
     Indication: RENAL TRANSPLANT
     Dosage: SEE IMAGE
     Route: 041
     Dates: start: 20020805, end: 20020805
  15. METHYLPREDNISOLONE [Suspect]
     Indication: RENAL TRANSPLANT
     Dosage: 400 MG, IV NOS : 300 MG, IV NOS : 250 MG, IV NOS : 200 MG, IV NOS : 100 MG, IV NOS : 100 MG, IV NOS
     Route: 042
     Dates: start: 20020627, end: 20020628
  16. METHYLPREDNISOLONE [Suspect]
     Indication: RENAL TRANSPLANT
     Dosage: 400 MG, IV NOS : 300 MG, IV NOS : 250 MG, IV NOS : 200 MG, IV NOS : 100 MG, IV NOS : 100 MG, IV NOS
     Route: 042
     Dates: start: 20020629, end: 20020629
  17. METHYLPREDNISOLONE [Suspect]
     Indication: RENAL TRANSPLANT
     Dosage: 400 MG, IV NOS : 300 MG, IV NOS : 250 MG, IV NOS : 200 MG, IV NOS : 100 MG, IV NOS : 100 MG, IV NOS
     Route: 042
     Dates: start: 20020630, end: 20020630
  18. METHYLPREDNISOLONE [Suspect]
     Indication: RENAL TRANSPLANT
     Dosage: 400 MG, IV NOS : 300 MG, IV NOS : 250 MG, IV NOS : 200 MG, IV NOS : 100 MG, IV NOS : 100 MG, IV NOS
     Route: 042
     Dates: start: 20020701, end: 20020703
  19. METHYLPREDNISOLONE [Suspect]
     Indication: RENAL TRANSPLANT
     Dosage: 400 MG, IV NOS : 300 MG, IV NOS : 250 MG, IV NOS : 200 MG, IV NOS : 100 MG, IV NOS : 100 MG, IV NOS
     Route: 042
     Dates: start: 20020704, end: 20020710
  20. METHYLPREDNISOLONE [Suspect]
     Indication: RENAL TRANSPLANT
     Dosage: 400 MG, IV NOS : 300 MG, IV NOS : 250 MG, IV NOS : 200 MG, IV NOS : 100 MG, IV NOS : 100 MG, IV NOS
     Route: 042
     Dates: start: 20020725, end: 20020821
  21. METHYLPREDNISOLONE [Suspect]
     Indication: RENAL TRANSPLANT
     Dosage: 20.00 MG, ORAL : 20.00 MG, ORAL
     Route: 048
     Dates: start: 20020711, end: 20020724
  22. METHYLPREDNISOLONE [Suspect]
     Indication: RENAL TRANSPLANT
     Dosage: 20.00 MG, ORAL : 20.00 MG, ORAL
     Route: 048
     Dates: start: 20020822
  23. MYCOPHENOLATE MOFETIL [Suspect]
     Indication: RENAL TRANSPLANT
     Dosage: 800.00 MG, ORAL : 400.00 MG, ORAL : 500.00 MG, ORAL
     Route: 048
     Dates: start: 20020625, end: 20020710
  24. MYCOPHENOLATE MOFETIL [Suspect]
     Indication: RENAL TRANSPLANT
     Dosage: 800.00 MG, ORAL : 400.00 MG, ORAL : 500.00 MG, ORAL
     Route: 048
     Dates: start: 20020711, end: 20020724
  25. MYCOPHENOLATE MOFETIL [Suspect]
     Indication: RENAL TRANSPLANT
     Dosage: 800.00 MG, ORAL : 400.00 MG, ORAL : 500.00 MG, ORAL
     Route: 048
     Dates: start: 20020822
  26. SIMULECT [Concomitant]
  27. DENOSINE (GANCICLOVIR) INJECTION [Concomitant]
  28. SULFAMETHOXAZOLE AND TRIMETHOPRIM [Concomitant]
  29. ZOVIRAX [Concomitant]
  30. ERYTHROPOIETIN (ERYTHROPOIETIN) INJECTION [Concomitant]
  31. COMELIAN (DILAZEP DIHYDROCHLORIDE) [Concomitant]

REACTIONS (11)
  - BLOOD PHOSPHORUS DECREASED [None]
  - CYTOMEGALOVIRUS INFECTION [None]
  - DRUG TOXICITY [None]
  - ESCHERICHIA SEPSIS [None]
  - FOCAL SEGMENTAL GLOMERULOSCLEROSIS [None]
  - GLOMERULOSCLEROSIS [None]
  - HYPERLIPIDAEMIA [None]
  - HYPERTENSION [None]
  - HYPERURICAEMIA [None]
  - STAPHYLOCOCCAL INFECTION [None]
  - URINARY ANASTOMOTIC LEAK [None]
